FAERS Safety Report 23701292 (Version 1)
Quarter: 2024Q2

REPORT INFORMATION
  Report Type: Spontaneous
  Country: DK (occurrence: DK)
  Receive Date: 20240403
  Receipt Date: 20240403
  Transmission Date: 20240715
  Serious: Yes (Other)
  Sender: FDA-Public Use
  Company Number: None

PATIENT
  Sex: Male
  Weight: 76 kg

DRUGS (3)
  1. QUETIAPINE FUMARATE [Suspect]
     Active Substance: QUETIAPINE FUMARATE
     Indication: Schizophrenia
     Dosage: DOSAGE: UNKNOWN?STRENGTH: UNKNOWN
     Dates: start: 2004, end: 2023
  2. NITRAZEPAM [Concomitant]
     Active Substance: NITRAZEPAM
     Indication: Schizophrenia
     Dates: start: 2009, end: 2019
  3. CITALOPRAM [Concomitant]
     Active Substance: CITALOPRAM\CITALOPRAM HYDROBROMIDE
     Indication: Anxiety

REACTIONS (8)
  - Speech disorder [Recovering/Resolving]
  - Memory impairment [Not Recovered/Not Resolved]
  - Loss of consciousness [Not Recovered/Not Resolved]
  - Tremor [Not Recovered/Not Resolved]
  - Overweight [Recovered/Resolved]
  - Paresis [Recovering/Resolving]
  - Presyncope [Recovered/Resolved]
  - Weight increased [Recovered/Resolved]

NARRATIVE: CASE EVENT DATE: 20040101
